FAERS Safety Report 5835562-0 (Version None)
Quarter: 2008Q3

REPORT INFORMATION
  Report Type: 
  Country: None (occurrence: None)
  Receive Date: 20080806
  Receipt Date: 20080730
  Transmission Date: 20090109
  Serious: Yes (Other)
  Sender: FDA-Public Use
  Company Number: B0531297A

PATIENT
  Age: 76 Year
  Sex: Female

DRUGS (2)
  1. TYVERB [Suspect]
     Indication: BREAST CANCER METASTATIC
     Dosage: 1250MG PER DAY
     Route: 048
     Dates: start: 20070403, end: 20070521
  2. XELODA [Suspect]
     Dosage: 3300MG PER DAY
     Dates: start: 20070403, end: 20070521

REACTIONS (1)
  - CARDIOTOXICITY [None]
